FAERS Safety Report 16288790 (Version 1)
Quarter: 2019Q2

REPORT INFORMATION
  Report Type: Spontaneous
  Country: CO (occurrence: CO)
  Receive Date: 20190509
  Receipt Date: 20190509
  Transmission Date: 20190711
  Serious: Yes (Other)
  Sender: FDA-Public Use
  Company Number: CO-ROCHE-2311848

PATIENT
  Age: 43 Year
  Sex: Female
  Weight: 52 kg

DRUGS (8)
  1. TRASTUZUMAB. [Suspect]
     Active Substance: TRASTUZUMAB
     Indication: OFF LABEL USE
     Dosage: DAY 1
     Route: 042
     Dates: start: 20160412
  2. TRASTUZUMAB. [Suspect]
     Active Substance: TRASTUZUMAB
     Indication: PRODUCT USED FOR UNKNOWN INDICATION
     Dosage: DAY 1
     Route: 042
     Dates: start: 20130525
  3. ANASTROZOLE. [Concomitant]
     Active Substance: ANASTROZOLE
     Indication: OFF LABEL USE
  4. PERTUZUMAB. [Suspect]
     Active Substance: PERTUZUMAB
     Indication: OFF LABEL USE
     Route: 042
  5. DOCETAXEL. [Concomitant]
     Active Substance: DOCETAXEL
     Indication: OFF LABEL USE
     Dosage: DAY 1
     Route: 042
     Dates: start: 20130525
  6. CARBOPLATIN. [Concomitant]
     Active Substance: CARBOPLATIN
     Indication: OFF LABEL USE
     Dosage: DAY 1
     Route: 042
     Dates: start: 20130525
  7. VINORELBINE [Concomitant]
     Active Substance: VINORELBINE\VINORELBINE TARTRATE
     Indication: OFF LABEL USE
     Dosage: DAY 1 AND DAY 8
     Route: 042
     Dates: start: 20160412
  8. PERTUZUMAB. [Suspect]
     Active Substance: PERTUZUMAB
     Indication: NEOPLASM
     Dosage: DAY 1
     Route: 042
     Dates: start: 20160412

REACTIONS (5)
  - Confusional state [Unknown]
  - Mucosal inflammation [Unknown]
  - Intentional product use issue [Unknown]
  - Asthenia [Unknown]
  - Off label use [Unknown]
